FAERS Safety Report 4741048-7 (Version None)
Quarter: 2005Q3

REPORT INFORMATION
  Report Type: 
  Country: None (occurrence: None)
  Receive Date: 20050810
  Receipt Date: 20050524
  Transmission Date: 20060218
  Serious: No
  Sender: FDA-Public Use
  Company Number: US-GLAXOSMITHKLINE-A0561869A

PATIENT
  Age: 54 Year
  Sex: Male

DRUGS (2)
  1. PAXIL [Suspect]
     Indication: DEPRESSION
     Dates: start: 20041001, end: 20050501
  2. PAXIL CR [Suspect]
     Indication: DEPRESSION
     Route: 048
     Dates: start: 20050101, end: 20050411

REACTIONS (2)
  - CONTUSION [None]
  - HEART RATE IRREGULAR [None]
